FAERS Safety Report 4442147-X (Version None)
Quarter: 2004Q3

REPORT INFORMATION
  Report Type: 
  Country: None (occurrence: None)
  Receive Date: 20040903
  Receipt Date: 20040818
  Transmission Date: 20050211
  Serious: Yes (Other)
  Sender: FDA-Public Use
  Company Number: 2004UW15369

PATIENT
  Age: 70 Year
  Sex: Female
  Weight: 70.3075 kg

DRUGS (7)
  1. CRESTOR [Suspect]
     Indication: BLOOD CHOLESTEROL INCREASED
     Dosage: 10 MG QD PO
     Route: 048
     Dates: start: 20040716
  2. CRESTOR [Suspect]
     Indication: BLOOD CHOLESTEROL INCREASED
     Dosage: 10 MG QD PO
     Route: 048
  3. ACCUPRIL [Concomitant]
  4. ZEBETA [Concomitant]
  5. AVANDIA [Concomitant]
  6. ONE-A-DAY [Concomitant]
  7. CALCIUM [Concomitant]

REACTIONS (2)
  - MYALGIA [None]
  - POLLAKIURIA [None]
